FAERS Safety Report 7235127-2 (Version None)
Quarter: 2011Q1

REPORT INFORMATION
  Report Type: 
  Country: None (occurrence: None)
  Receive Date: 20110120
  Receipt Date: 20110114
  Transmission Date: 20110831
  Serious: Yes (Death, Other)
  Sender: FDA-Public Use
  Company Number: JP-CELGENEUS-087-21880-10090333

PATIENT
  Sex: Female
  Weight: 43.2 kg

DRUGS (10)
  1. GASTER D [Concomitant]
     Route: 048
     Dates: start: 20100818, end: 20100830
  2. GOSHA-JINKI-GAN [Concomitant]
     Route: 048
     Dates: start: 20100818, end: 20100830
  3. LENADEX [Suspect]
     Route: 048
     Dates: start: 20100828, end: 20100830
  4. RIZE [Concomitant]
     Indication: MULTIPLE MYELOMA
     Route: 048
     Dates: start: 20100819, end: 20100825
  5. DUROTEP [Concomitant]
     Route: 061
     Dates: start: 20100829
  6. ASPIRIN [Concomitant]
     Indication: PROPHYLAXIS
     Route: 048
     Dates: start: 20100818, end: 20100830
  7. LOXONIN [Concomitant]
     Indication: MULTIPLE MYELOMA
     Route: 048
     Dates: start: 20100818, end: 20100824
  8. DUROTEP [Concomitant]
     Indication: MULTIPLE MYELOMA
     Route: 061
     Dates: start: 20100826
  9. CONIEL [Concomitant]
     Indication: HYPERTENSION
     Route: 048
     Dates: start: 20100818, end: 20100830
  10. REVLIMID [Suspect]
     Route: 048
     Dates: start: 20100818, end: 20100830

REACTIONS (2)
  - PULMONARY EMBOLISM [None]
  - PLATELET COUNT DECREASED [None]
